FAERS Safety Report 16237233 (Version 1)
Quarter: 2019Q2

REPORT INFORMATION
  Report Type: Spontaneous
  Country: IN (occurrence: IN)
  Receive Date: 20190422
  Receipt Date: 20190422
  Transmission Date: 20190711
  Serious: No
  Sender: FDA-Public Use
  Company Number: None

PATIENT
  Age: 32 Year
  Sex: Female
  Weight: 67 kg

DRUGS (4)
  1. DUPHASTON 10 MG TABLETS [Concomitant]
     Dates: start: 20190316, end: 20190325
  2. POWERFOL CAPSULES [Concomitant]
     Dates: start: 20190306, end: 20190405
  3. GESRY [Suspect]
     Active Substance: PROGESTERONE
     Indication: INFERTILITY FEMALE
     Route: 048
     Dates: start: 20190316, end: 20190325
  4. SIPHENE 50 MG TABLETS [Concomitant]
     Dates: start: 20190306, end: 20190310

REACTIONS (7)
  - Peripheral coldness [None]
  - Dysarthria [None]
  - Dizziness [None]
  - Hypoaesthesia [None]
  - Somnolence [None]
  - Therapeutic response prolonged [None]
  - Disturbance in attention [None]

NARRATIVE: CASE EVENT DATE: 20190316
